FAERS Safety Report 16815673 (Version 5)
Quarter: 2020Q1

REPORT INFORMATION
  Report Type: Report from Study
  Country: None (occurrence: US)
  Receive Date: 20190917
  Receipt Date: 20200320
  Transmission Date: 20200409
  Serious: Yes (Other)
  Sender: FDA-Public Use
  Company Number: US-ABBVIE-19K-163-2921878-00

PATIENT
  Sex: Female
  Weight: 92.62 kg

DRUGS (3)
  1. HUMIRA [Suspect]
     Active Substance: ADALIMUMAB
     Route: 058
     Dates: start: 2019
  2. HUMIRA [Suspect]
     Active Substance: ADALIMUMAB
     Indication: RHEUMATOID ARTHRITIS
     Route: 058
     Dates: start: 201701
  3. HUMIRA [Suspect]
     Active Substance: ADALIMUMAB
     Dosage: DOSE INCREASED FOR ONE MONTH
     Route: 058

REACTIONS (5)
  - Pain [Unknown]
  - Skin papilloma [Not Recovered/Not Resolved]
  - Gallbladder hypofunction [Unknown]
  - Neoplasm skin [Unknown]
  - Rheumatoid arthritis [Unknown]
